FAERS Safety Report 9253767 (Version 1)
Quarter: 2013Q2

REPORT INFORMATION
  Report Type: Spontaneous
  Country: US (occurrence: US)
  Receive Date: 20130425
  Receipt Date: 20130425
  Transmission Date: 20140414
  Serious: No
  Sender: FDA-Public Use
  Company Number: US-PFIZER INC-2013125322

PATIENT
  Age: 51 Year
  Sex: Male

DRUGS (3)
  1. LEVOXYL [Suspect]
     Indication: AUTOIMMUNE THYROIDITIS
     Dosage: 75 UG, 1X/DAY
     Route: 048
     Dates: start: 20130417, end: 20130419
  2. LEVOXYL [Suspect]
     Indication: THYROXINE DECREASED
  3. ARMOUR THYROID [Concomitant]
     Indication: AUTOIMMUNE THYROIDITIS
     Dosage: 60 UG, UNK

REACTIONS (1)
  - Skin odour abnormal [Not Recovered/Not Resolved]
